FAERS Safety Report 6789705-5 (Version None)
Quarter: 2010Q2

REPORT INFORMATION
  Report Type: 
  Country: None (occurrence: None)
  Receive Date: 20100624
  Receipt Date: 20100618
  Transmission Date: 20101027
  Serious: Yes (Disabling, Other)
  Sender: FDA-Public Use
  Company Number: GB-TEVA-238198ISR

PATIENT
  Age: 61 Year
  Sex: Male
  Weight: 70 kg

DRUGS (2)
  1. WARFARIN [Suspect]
     Indication: PULMONARY EMBOLISM
     Route: 048
  2. PINEAPPLE (ANANAS COMOSUS) [Suspect]

REACTIONS (2)
  - FOOD INTERACTION [None]
  - INTERNATIONAL NORMALISED RATIO INCREASED [None]
